FAERS Safety Report 23171184 (Version 2)
Quarter: 2023Q4

REPORT INFORMATION
  Report Type: Spontaneous
  Country: GB (occurrence: GB)
  Receive Date: 20231110
  Receipt Date: 20231129
  Transmission Date: 20240110
  Serious: Yes (Other)
  Sender: FDA-Public Use
  Company Number: None

PATIENT

DRUGS (22)
  1. OMEPRAZOLE [Suspect]
     Active Substance: OMEPRAZOLE
     Indication: Product used for unknown indication
     Dosage: UNK
     Dates: start: 20231020
  2. OMEPRAZOLE [Suspect]
     Active Substance: OMEPRAZOLE
     Indication: Duodenal ulcer
  3. ASPIRIN [Concomitant]
     Active Substance: ASPIRIN
     Dates: start: 20160422, end: 20231024
  4. BISOPROLOL [Concomitant]
     Active Substance: BISOPROLOL\BISOPROLOL FUMARATE
     Dosage: 1 DOSAGE FORM
     Dates: start: 20230314, end: 20231024
  5. CLOPIDOGREL [Concomitant]
     Active Substance: CLOPIDOGREL BISULFATE
     Dosage: 1 DOSAGE FORM
     Dates: start: 20160408, end: 20231024
  6. EZETIMIBE [Concomitant]
     Active Substance: EZETIMIBE
     Dosage: 1 DOSAGE FORM
     Dates: start: 20230621, end: 20231024
  7. FELODIPINE [Concomitant]
     Active Substance: FELODIPINE
     Dosage: 1 DOSAGE FORM
     Dates: start: 20160316, end: 20231024
  8. FENOFIBRATE [Concomitant]
     Active Substance: FENOFIBRATE
     Dosage: 1 DOSAGE FORM
     Dates: start: 20160316, end: 20231024
  9. NITROGLYCERIN [Concomitant]
     Active Substance: NITROGLYCERIN
     Dosage: SPRAY ONE OR TWO DOSES UNDER TONGUE AND THEN CL...
     Route: 060
     Dates: start: 20160316, end: 20231024
  10. HYDROXOCOBALAMIN [Concomitant]
     Active Substance: HYDROXOCOBALAMIN
     Dosage: 1MG/1ML INJECTION
     Dates: start: 20230623, end: 20231016
  11. IRBESARTAN [Concomitant]
     Active Substance: IRBESARTAN
     Dosage: (9AM + 9PM)
     Dates: start: 20200630, end: 20231024
  12. IVABRADINE [Concomitant]
     Active Substance: IVABRADINE
     Dosage: 1 DOSAGE FORM
     Dates: start: 20231026
  13. LANSOPRAZOLE [Concomitant]
     Active Substance: LANSOPRAZOLE
     Dosage: 1 DOSAGE FORM
     Dates: start: 20190319, end: 20231024
  14. ISOSORBIDE MONONITRATE [Concomitant]
     Active Substance: ISOSORBIDE MONONITRATE
     Dosage: MORNING
     Dates: start: 20190709, end: 20231024
  15. NICORANDIL [Concomitant]
     Active Substance: NICORANDIL
     Dosage: 1 DOSAGE FORM
     Dates: start: 20160316, end: 20231024
  16. ACETAMINOPHEN [Concomitant]
     Active Substance: ACETAMINOPHEN
     Dosage: ONE OR TWO TO BE TAKEN FOUR TIMES A DAY WHEN RE...
     Dates: start: 20230928, end: 20231016
  17. RANOLAZINE [Concomitant]
     Active Substance: RANOLAZINE
     Dosage: 1 DOSAGE FORM
     Dates: start: 20210528, end: 20231024
  18. ALBUTEROL [Concomitant]
     Active Substance: ALBUTEROL
     Dosage: ONE OR TWO PUFFS TO BE INHALED UP TO FOUR TIMES...
     Route: 055
     Dates: start: 20200928, end: 20231016
  19. SPIRONOLACTONE [Concomitant]
     Active Substance: SPIRONOLACTONE
     Dosage: 1 DOSAGE FORM
     Dates: start: 20231023, end: 20231024
  20. METFORMIN HYDROCHLORIDE [Concomitant]
     Active Substance: METFORMIN HYDROCHLORIDE
     Dosage: 1 DOSAGE FORM
     Dates: start: 20180417, end: 20231024
  21. SYMBICORT [Concomitant]
     Active Substance: BUDESONIDE\FORMOTEROL FUMARATE DIHYDRATE
     Dosage: 3 DOSAGE FORM
     Route: 055
     Dates: start: 20160316, end: 20231024
  22. THIAMINE [Concomitant]
     Active Substance: THIAMINE
     Dates: start: 20231023, end: 20231024

REACTIONS (2)
  - Oral mucosal blistering [Recovered/Resolved]
  - Sleep disorder [Recovered/Resolved]
